FAERS Safety Report 10301882 (Version 1)
Quarter: 2014Q3

REPORT INFORMATION
  Report Type: Spontaneous
  Country: IT (occurrence: IT)
  Receive Date: 20140714
  Receipt Date: 20140714
  Transmission Date: 20150326
  Serious: Yes (Other)
  Sender: FDA-Public Use
  Company Number: IT-TEVA-492741ISR

PATIENT
  Age: 27 Year
  Sex: Male

DRUGS (2)
  1. CEFTRIAXONE DISODIUM [Suspect]
     Active Substance: CEFTRIAXONE
     Indication: PYREXIA
     Dosage: 6 G TOTAL
     Route: 030
     Dates: start: 20140625, end: 20140627
  2. AUGMENTIN [Suspect]
     Active Substance: AMOXICILLIN\CLAVULANATE POTASSIUM
     Indication: PYREXIA
     Dosage: 2 G DAILY
     Route: 048
     Dates: start: 20140618, end: 20140624

REACTIONS (2)
  - Bronchopneumonia [Recovering/Resolving]
  - Drug ineffective [Recovering/Resolving]

NARRATIVE: CASE EVENT DATE: 20140627
